FAERS Safety Report 8610096-9 (Version None)
Quarter: 2012Q3

REPORT INFORMATION
  Report Type: 
  Country: None (occurrence: None)
  Receive Date: 20120822
  Receipt Date: 20120813
  Transmission Date: 20120928
  Serious: No
  Sender: FDA-Public Use
  Company Number: US-BIOGENIDEC-2010BI033607

PATIENT
  Sex: Female

DRUGS (1)
  1. TYSABRI [Suspect]
     Indication: MULTIPLE SCLEROSIS
     Route: 042
     Dates: start: 20080925

REACTIONS (11)
  - BRADYPHRENIA [None]
  - DIZZINESS [None]
  - VIRAL INFECTION [None]
  - MEMORY IMPAIRMENT [None]
  - FEELING OF BODY TEMPERATURE CHANGE [None]
  - URINARY TRACT INFECTION [None]
  - DEPRESSED MOOD [None]
  - CONCUSSION [None]
  - BALANCE DISORDER [None]
  - HEADACHE [None]
  - MUSCLE SPASMS [None]
